FAERS Safety Report 4747718-9 (Version None)
Quarter: 2005Q3

REPORT INFORMATION
  Report Type: 
  Country: None (occurrence: None)
  Receive Date: 20050816
  Receipt Date: 20050802
  Transmission Date: 20060218
  Serious: Yes (Hospitalization)
  Sender: FDA-Public Use
  Company Number: 2005BI014537

PATIENT
  Age: 48 Year
  Sex: Female
  Weight: 63.9572 kg

DRUGS (3)
  1. AVONEX [Suspect]
     Indication: MULTIPLE SCLEROSIS
     Dosage: 30 UG;QW;IM
     Route: 030
     Dates: start: 20000417, end: 20030101
  2. AVONEX [Suspect]
     Indication: MULTIPLE SCLEROSIS
     Dosage: 30 UG;QW;IM
     Route: 030
     Dates: start: 20030101
  3. WELLBUTRIN [Concomitant]

REACTIONS (4)
  - HAEMATOMA [None]
  - HIP FRACTURE [None]
  - THROMBOSIS [None]
  - URINARY TRACT INFECTION [None]
